FAERS Safety Report 12982726 (Version 2)
Quarter: 2016Q4

REPORT INFORMATION
  Report Type: Spontaneous
  Country: US (occurrence: US)
  Receive Date: 20161129
  Receipt Date: 20161214
  Transmission Date: 20170207
  Serious: Yes (Other)
  Sender: FDA-Public Use
  Company Number: US-SHIRE-US201617614

PATIENT
  Sex: Female

DRUGS (1)
  1. XIIDRA [Suspect]
     Active Substance: LIFITEGRAST
     Indication: PRODUCT USED FOR UNKNOWN INDICATION
     Dosage: UNK, UNKNOWN
     Route: 047
     Dates: start: 201611, end: 201611

REACTIONS (6)
  - Eye pain [Unknown]
  - Diplopia [Unknown]
  - Neoplasm progression [Unknown]
  - Eye haemorrhage [Unknown]
  - Vision blurred [Unknown]
  - Exophthalmos [Unknown]

NARRATIVE: CASE EVENT DATE: 20161113
